FAERS Safety Report 8496606-3 (Version None)
Quarter: 2012Q3

REPORT INFORMATION
  Report Type: 
  Country: None (occurrence: None)
  Receive Date: 20120709
  Receipt Date: 20120612
  Transmission Date: 20120928
  Serious: No
  Sender: FDA-Public Use
  Company Number: JP-PFIZER INC-2012076030

PATIENT
  Sex: Male

DRUGS (8)
  1. GANATON [Concomitant]
     Dosage: UNK
     Route: 048
  2. SEVEN EP [Concomitant]
     Route: 048
  3. AMLODIPINE [Suspect]
     Indication: HYPERTENSION
     Dosage: 2.5 MG, 1X/DAY
     Route: 048
     Dates: start: 20111115, end: 20111206
  4. GASCON [Concomitant]
     Dosage: UNK
     Route: 048
  5. FLAVOXATE HYDROCHLORIDE [Concomitant]
     Dosage: UNK
     Route: 048
  6. CANDESARTAN CILEXETIL [Concomitant]
     Indication: HYPERTENSION
     Dosage: 4 MG, 1X/DAY
     Route: 048
     Dates: start: 20111115, end: 20111206
  7. GASMOTIN [Concomitant]
     Route: 048
  8. DAI-KENCHU-TO [Concomitant]
     Route: 048

REACTIONS (1)
  - NO ADVERSE EVENT [None]
